FAERS Safety Report 24814072 (Version 1)
Quarter: 2025Q1

REPORT INFORMATION
  Report Type: Spontaneous
  Country: US (occurrence: US)
  Receive Date: 20250107
  Receipt Date: 20250107
  Transmission Date: 20250409
  Serious: Yes (Other)
  Sender: AMGEN
  Company Number: US-AMGEN-USASP2024256390

PATIENT
  Age: 71 Year
  Sex: Male

DRUGS (2)
  1. IMDELLTRA [Suspect]
     Active Substance: TARLATAMAB-DLLE
     Indication: Small cell lung cancer
     Route: 065
  2. IMDELLTRA [Suspect]
     Active Substance: TARLATAMAB-DLLE
     Indication: Metastases to bone

REACTIONS (2)
  - Renal impairment [Unknown]
  - Hypotension [Unknown]

NARRATIVE: CASE EVENT DATE: 20241231
